FAERS Safety Report 24252694 (Version 1)
Quarter: 2024Q3

REPORT INFORMATION
  Report Type: Spontaneous
  Country: CH (occurrence: CH)
  Receive Date: 20240827
  Receipt Date: 20240827
  Transmission Date: 20241017
  Serious: Yes (Death, Hospitalization)
  Sender: NOVARTIS
  Company Number: CH-002147023-NVSC2024CH152721

PATIENT
  Age: 85 Year
  Sex: Male

DRUGS (1)
  1. PLUVICTO [Suspect]
     Active Substance: LUTETIUM LU-177 VIPIVOTIDE TETRAXETAN
     Indication: Hormone-refractory prostate cancer
     Dosage: 5500 MBQ (/6WEEKS)
     Route: 042
     Dates: start: 20240618, end: 20240724

REACTIONS (2)
  - Septic shock [Fatal]
  - Ill-defined disorder [Unknown]
